FAERS Safety Report 19169958 (Version 8)
Quarter: 2023Q2

REPORT INFORMATION
  Report Type: Spontaneous
  Country: IN (occurrence: IN)
  Receive Date: 20210422
  Receipt Date: 20230412
  Transmission Date: 20230721
  Serious: Yes (Other)
  Sender: FDA-Public Use
  Company Number: IN-PFIZER INC-2020144319

PATIENT
  Age: 64 Year
  Sex: Male

DRUGS (17)
  1. SUTENT [Suspect]
     Active Substance: SUNITINIB MALATE
     Indication: Metastatic renal cell carcinoma
     Dosage: 50 MG, CYCLIC (ONCE A DAY 1-0-0 FOR 28 DAYS ON AND 14 DAYS OFF))
     Route: 048
     Dates: start: 20190121
  2. SUTENT [Suspect]
     Active Substance: SUNITINIB MALATE
     Dosage: 50 MG
     Route: 048
     Dates: start: 20230207
  3. GRANIFORCE [Concomitant]
     Dosage: 1 MG, 1X/DAY (1-0-0)
  4. BECOSULES [ASCORBIC ACID;VITAMIN B NOS] [Concomitant]
     Dosage: UNK, 1X/DAY (1-0-0)
  5. CALDIKIND PLUS [Concomitant]
     Dosage: UNK, 1X/DAY (1-0-0)
  6. DOMPERIDONE\PANTOPRAZOLE SODIUM [Concomitant]
     Active Substance: DOMPERIDONE\PANTOPRAZOLE SODIUM
     Dosage: UNK, 2X/DAY (1-0-1)
  7. FERONIA XT [Concomitant]
     Dosage: UNK, 2X/DAY (1-0-1)
  8. ASCORBIC ACID [Concomitant]
     Active Substance: ASCORBIC ACID
     Dosage: UNK, 2X/DAY (1-0-1)
  9. BETADINE [Concomitant]
     Active Substance: POVIDONE-IODINE
     Dosage: UNK, GARGLE 10 TIMES DAY
  10. KABIPRO [Concomitant]
     Dosage: UNK, 2 TSF-0-2 TSF
  11. KABIPRO [Concomitant]
     Dosage: UNK, 2 TSP, 3 TIMES/DAY WITH MTH
  12. XGEVA [Concomitant]
     Active Substance: DENOSUMAB
     Dosage: 120 MG, MONTHLY, ) SQ ONCE A MONTH
  13. SHELCAL M [Concomitant]
     Dosage: UNK, 1X/DAY (1-0-0)
  14. BETONIN [Concomitant]
     Dosage: UNK, 2 TSP-2 TSP-2TSP
  15. MUCOPAIN [Concomitant]
     Dosage: UNK
  16. AMLODIPINE BESYLATE [Concomitant]
     Active Substance: AMLODIPINE BESYLATE
     Dosage: 5 MG, 2X/DAY (1-0-1)
  17. DENOCI [Concomitant]
     Dosage: UNK, MONTHLY

REACTIONS (8)
  - Gastric antral vascular ectasia [Unknown]
  - Asthenia [Unknown]
  - Oral disorder [Recovering/Resolving]
  - Oedema peripheral [Unknown]
  - Back pain [Unknown]
  - Haemoglobin decreased [Unknown]
  - Blood creatinine increased [Unknown]
  - Drug intolerance [Unknown]
